FAERS Safety Report 20150158 (Version 1)
Quarter: 2021Q4

REPORT INFORMATION
  Report Type: Report from Study
  Country: US (occurrence: US)
  Receive Date: 20211206
  Receipt Date: 20211206
  Transmission Date: 20220303
  Serious: Yes (Other)
  Sender: FDA-Public Use
  Company Number: US-ACADIA PHARMACEUTICALS INC.-ACA-2021-PIM-004148

PATIENT
  Sex: Male

DRUGS (4)
  1. NUPLAZID [Suspect]
     Active Substance: PIMAVANSERIN TARTRATE
     Indication: Parkinson^s disease
     Dosage: 34 MILLIGRAM, QD
     Route: 048
     Dates: start: 202007
  2. OXYCODONE [Suspect]
     Active Substance: OXYCODONE
     Indication: Pain
  3. OXYCODONE [Suspect]
     Active Substance: OXYCODONE
     Indication: Discomfort
  4. METOPROLOL SUCCINATE [Concomitant]
     Active Substance: METOPROLOL SUCCINATE

REACTIONS (5)
  - Hip fracture [Unknown]
  - Pain [Unknown]
  - Discomfort [Unknown]
  - Anxiety [Unknown]
  - Fall [Unknown]
